FAERS Safety Report 9556430 (Version 1)
Quarter: 2013Q3

REPORT INFORMATION
  Report Type: Report from Study
  Country: US (occurrence: US)
  Receive Date: 20130926
  Receipt Date: 20130926
  Transmission Date: 20140515
  Serious: Yes (Hospitalization, Other)
  Sender: FDA-Public Use
  Company Number: US-SANOFI-AVENTIS-2013SA094781

PATIENT
  Sex: Female

DRUGS (1)
  1. AUBAGIO [Suspect]
     Route: 048
     Dates: start: 201301

REACTIONS (5)
  - Adverse event [Unknown]
  - VIth nerve paralysis [Unknown]
  - Limb discomfort [Unknown]
  - Hypoaesthesia [Unknown]
  - Fatigue [Unknown]
